FAERS Safety Report 20249235 (Version 3)
Quarter: 2022Q3

REPORT INFORMATION
  Report Type: Spontaneous
  Country: CA (occurrence: CA)
  Receive Date: 20211229
  Receipt Date: 20220822
  Transmission Date: 20221026
  Serious: Yes (Hospitalization, Other)
  Sender: FDA-Public Use
  Company Number: CA-SAMSUNG BIOEPIS-SB-2021-30078

PATIENT
  Age: 43 Year
  Sex: Male
  Weight: 104 kg

DRUGS (4)
  1. INFLIXIMAB [Suspect]
     Active Substance: INFLIXIMAB
     Indication: Crohn^s disease
     Route: 041
  2. PREDNISONE [Concomitant]
     Active Substance: PREDNISONE
     Indication: Product used for unknown indication
     Route: 065
  3. BISOPROLOL [Concomitant]
     Active Substance: BISOPROLOL
     Indication: Product used for unknown indication
     Route: 048
  4. RABEPRAZOLE [Concomitant]
     Active Substance: RABEPRAZOLE
     Indication: Gastrooesophageal reflux disease
     Route: 048

REACTIONS (34)
  - Ventricular tachycardia [Not Recovered/Not Resolved]
  - Cardiac disorder [Not Recovered/Not Resolved]
  - Cardiac infection [Not Recovered/Not Resolved]
  - Arthralgia [Not Recovered/Not Resolved]
  - Abscess [Not Recovered/Not Resolved]
  - Anal fissure [Not Recovered/Not Resolved]
  - Angina pectoris [Not Recovered/Not Resolved]
  - Bloody discharge [Not Recovered/Not Resolved]
  - Body temperature decreased [Not Recovered/Not Resolved]
  - Chest discomfort [Not Recovered/Not Resolved]
  - Chest pain [Not Recovered/Not Resolved]
  - Condition aggravated [Not Recovered/Not Resolved]
  - Diarrhoea [Not Recovered/Not Resolved]
  - Discharge [Not Recovered/Not Resolved]
  - Dysuria [Not Recovered/Not Resolved]
  - Erythema [Not Recovered/Not Resolved]
  - Faecal calprotectin increased [Not Recovered/Not Resolved]
  - Fungal infection [Not Recovered/Not Resolved]
  - Groin infection [Not Recovered/Not Resolved]
  - Heart rate increased [Not Recovered/Not Resolved]
  - Hidradenitis [Not Recovered/Not Resolved]
  - Infection [Not Recovered/Not Resolved]
  - Localised infection [Not Recovered/Not Resolved]
  - Lymph gland infection [Not Recovered/Not Resolved]
  - Malaise [Not Recovered/Not Resolved]
  - Mass [Not Recovered/Not Resolved]
  - Pain [Not Recovered/Not Resolved]
  - Penis disorder [Not Recovered/Not Resolved]
  - Skin infection [Not Recovered/Not Resolved]
  - Drug ineffective [Not Recovered/Not Resolved]
  - Off label use [Not Recovered/Not Resolved]
  - Inappropriate schedule of product administration [Not Recovered/Not Resolved]
  - Intentional product use issue [Not Recovered/Not Resolved]
  - Product dose omission issue [Not Recovered/Not Resolved]
